FAERS Safety Report 4845723-5 (Version None)
Quarter: 2005Q4

REPORT INFORMATION
  Report Type: 
  Country: None (occurrence: None)
  Receive Date: 20051206
  Receipt Date: 20051128
  Transmission Date: 20060501
  Serious: Yes (Death, Other)
  Sender: FDA-Public Use
  Company Number: DE-JNJFOC-20050902239

PATIENT
  Sex: Male

DRUGS (2)
  1. DURAGESIC-100 [Suspect]
     Indication: DRUG USE FOR UNKNOWN INDICATION
     Route: 062
  2. UNSPECIFIED ANTIDEPRESSIVE DRUG [Concomitant]
     Route: 065

REACTIONS (3)
  - DEATH [None]
  - HALLUCINATION, VISUAL [None]
  - MENTAL IMPAIRMENT [None]
